FAERS Safety Report 11324547 (Version 2)
Quarter: 2015Q3

REPORT INFORMATION
  Report Type: Spontaneous
  Country: US (occurrence: US)
  Receive Date: 20150730
  Receipt Date: 20150821
  Transmission Date: 20151125
  Serious: Yes (Other)
  Sender: FDA-Public Use
  Company Number: US-TARO-2015TAR00689

PATIENT
  Sex: Male
  Weight: 66.21 kg

DRUGS (6)
  1. VIRACEPT [Concomitant]
     Active Substance: NELFINAVIR MESYLATE
  2. WARFARIN SODIUM TABLETS USP 10MG [Suspect]
     Active Substance: WARFARIN SODIUM
     Indication: COAGULOPATHY
     Dosage: 15 MG TOTAL DOSE (WITH 4 MG TABLET), DAILY
     Route: 048
  3. WARFARIN SODIUM TABLETS USP 1MG [Suspect]
     Active Substance: WARFARIN SODIUM
     Dosage: 15 MG (TOTAL DOSE WITH 10 MG TABLET) DAILY
     Route: 048
  4. WARFARIN SODIUM TABLETS USP 1MG [Suspect]
     Active Substance: WARFARIN SODIUM
     Indication: COAGULOPATHY
     Dosage: 4 MG, 1X/DAY
     Route: 048
     Dates: start: 2008
  5. COMBIVIR [Concomitant]
     Active Substance: LAMIVUDINE\ZIDOVUDINE
  6. METOPROLOL [Concomitant]
     Active Substance: METOPROLOL
     Dosage: UNK, 1X/DAY

REACTIONS (4)
  - Deep vein thrombosis [Recovering/Resolving]
  - International normalised ratio decreased [Not Recovered/Not Resolved]
  - Drug ineffective [Not Recovered/Not Resolved]
  - Pulmonary embolism [Unknown]
